FAERS Safety Report 24210677 (Version 1)
Quarter: 2024Q3

REPORT INFORMATION
  Report Type: Spontaneous
  Country: US (occurrence: None)
  Receive Date: 20240813
  Receipt Date: 20240813
  Transmission Date: 20241017
  Serious: Yes (unspecified)
  Sender: Public
  Company Number: None

PATIENT
  Age: 38 Year
  Sex: Female
  Weight: 61.23 kg

DRUGS (2)
  1. COMPLEMENTARY SUPPLEMENT, OTHER [Suspect]
     Active Substance: COMPLEMENTARY SUPPLEMENT, OTHER
     Dosage: OTHER QUANTITY : 2 SPRAY(S)?OTHER FREQUENCY : IN THE MORNING ?
     Route: 055
     Dates: start: 20240201, end: 20240301
  2. MAGNESIUM [Concomitant]

REACTIONS (3)
  - Nasal septal operation [None]
  - Migraine [None]
  - Tinnitus [None]

NARRATIVE: CASE EVENT DATE: 20240401
